FAERS Safety Report 16211208 (Version 1)
Quarter: 2019Q2

REPORT INFORMATION
  Report Type: Spontaneous
  Country: GB (occurrence: GB)
  Receive Date: 20190417
  Receipt Date: 20190417
  Transmission Date: 20190711
  Serious: No
  Sender: FDA-Public Use
  Company Number: None

PATIENT
  Age: 31 Year
  Sex: Female
  Weight: 58 kg

DRUGS (1)
  1. BIORE BAKING SODA ACNE CLEANSING FOAM [Suspect]
     Active Substance: SALICYLIC ACID
     Indication: SEBORRHOEA
     Dates: start: 20190412, end: 20190415

REACTIONS (6)
  - Rash papular [None]
  - Application site pain [None]
  - Rash generalised [None]
  - Product complaint [None]
  - Rash erythematous [None]
  - Eye swelling [None]

NARRATIVE: CASE EVENT DATE: 20190412
